FAERS Safety Report 17915125 (Version 3)
Quarter: 2020Q3

REPORT INFORMATION
  Report Type: Spontaneous
  Country: US (occurrence: US)
  Receive Date: 20200618
  Receipt Date: 20200709
  Transmission Date: 20201103
  Serious: No
  Sender: FDA-Public Use
  Company Number: US-BLUEPRINT MEDICINES CORPORATION-SP-US-2020-000700

PATIENT
  Age: 78 Year
  Sex: Female

DRUGS (2)
  1. AYVAKIT [Suspect]
     Active Substance: AVAPRITINIB
     Indication: MALIGNANT CONNECTIVE TISSUE NEOPLASM
     Route: 048
     Dates: start: 20200527, end: 20200615
  2. AYVAKIT [Suspect]
     Active Substance: AVAPRITINIB
     Indication: SOFT TISSUE SARCOMA

REACTIONS (11)
  - Dry skin [Recovered/Resolved]
  - Rash [Recovered/Resolved]
  - Abdominal pain lower [Recovered/Resolved]
  - Asthenia [Not Recovered/Not Resolved]
  - Vomiting [Recovered/Resolved]
  - Rash pustular [Not Recovered/Not Resolved]
  - Dizziness [Not Recovered/Not Resolved]
  - Pruritus [Not Recovered/Not Resolved]
  - Decreased appetite [Not Recovered/Not Resolved]
  - Off label use [Not Recovered/Not Resolved]
  - Nausea [Recovered/Resolved]

NARRATIVE: CASE EVENT DATE: 20200527
